FAERS Safety Report 14481797 (Version 1)
Quarter: 2018Q1

REPORT INFORMATION
  Report Type: Report from Study
  Country: US (occurrence: US)
  Receive Date: 20180202
  Receipt Date: 20180202
  Transmission Date: 20180509
  Serious: Yes (Hospitalization, Other)
  Sender: FDA-Public Use
  Company Number: US-SEBELA IRELAND LIMITED-2018SEB00011

PATIENT
  Sex: Male

DRUGS (6)
  1. HUMIRA [Suspect]
     Active Substance: ADALIMUMAB
     Dosage: 40 MG, 2X/MONTH
     Route: 058
     Dates: start: 201708, end: 2017
  2. PREDNISONE. [Suspect]
     Active Substance: PREDNISONE
     Dosage: UNK
     Dates: start: 2017
  3. IMURAN [Suspect]
     Active Substance: AZATHIOPRINE
     Indication: CROHN^S DISEASE
     Dosage: UNK
     Dates: start: 201701
  4. PREDNISONE. [Suspect]
     Active Substance: PREDNISONE
     Indication: CROHN^S DISEASE
     Dosage: UNK
     Dates: start: 201701, end: 2017
  5. HUMIRA [Suspect]
     Active Substance: ADALIMUMAB
     Indication: CROHN^S DISEASE
     Dosage: 40 MG, 2X/MONTH
     Route: 058
     Dates: start: 2014, end: 201705
  6. HUMIRA [Suspect]
     Active Substance: ADALIMUMAB
     Dosage: 1 DOSAGE UNITS, ONCE
     Route: 058
     Dates: start: 201709, end: 201709

REACTIONS (6)
  - Intestinal fistula [Unknown]
  - Drug ineffective [Unknown]
  - Intestinal scarring [Unknown]
  - Crohn^s disease [Recovered/Resolved]
  - Abscess intestinal [Recovered/Resolved]
  - Gastrointestinal infection [Unknown]

NARRATIVE: CASE EVENT DATE: 2017
